FAERS Safety Report 9069251 (Version 1)
Quarter: 2013Q1

REPORT INFORMATION
  Report Type: Spontaneous
  Country: US (occurrence: US)
  Receive Date: 20130215
  Receipt Date: 20130215
  Transmission Date: 20140127
  Serious: Yes (Other)
  Sender: FDA-Public Use
  Company Number: US-BAYER-2013-019760

PATIENT
  Age: 40 Year
  Sex: Female

DRUGS (1)
  1. ULTRAVIST [Suspect]
     Dosage: 75 ML, UNK
     Route: 042
     Dates: start: 20130213

REACTIONS (2)
  - Injection site urticaria [None]
  - Dyspnoea [None]
